FAERS Safety Report 13737500 (Version 1)
Quarter: 2017Q3

REPORT INFORMATION
  Report Type: Spontaneous
  Country: US (occurrence: US)
  Receive Date: 20170710
  Receipt Date: 20170710
  Transmission Date: 20171127
  Serious: Yes (Hospitalization)
  Sender: FDA-Public Use
  Company Number: US-MATRIXX INITIATIVES, INC.-2023146

PATIENT
  Age: 19 Year
  Sex: Male
  Weight: 81.82 kg

DRUGS (1)
  1. ZICAM COLD REMEDY RAPIDMELTS [Suspect]
     Active Substance: HOMEOPATHICS\ZINC ACETATE ANHYDROUS\ZINC GLUCONATE
     Route: 048
     Dates: start: 20170705, end: 20170705

REACTIONS (4)
  - Heart rate increased [None]
  - Blood pressure increased [None]
  - Palpitations [None]
  - Hyperhidrosis [None]
